FAERS Safety Report 5346201-X (Version None)
Quarter: 2007Q2

REPORT INFORMATION
  Report Type: 
  Country: None (occurrence: None)
  Receive Date: 20070605
  Receipt Date: 20070417
  Transmission Date: 20071010
  Serious: Yes (Life-Threatening)
  Sender: FDA-Public Use
  Company Number: JP-SANOFI-SYNTHELABO-A01200705818

PATIENT
  Age: 51 Year
  Sex: Female

DRUGS (4)
  1. CEFAMEZIN [Suspect]
     Indication: PROPHYLAXIS
     Route: 042
     Dates: start: 20070326, end: 20070326
  2. PROPOFOL [Suspect]
     Indication: INDUCTION OF ANAESTHESIA
     Route: 042
     Dates: start: 20070326, end: 20070326
  3. MUSCULAX [Suspect]
     Indication: INDUCTION OF ANAESTHESIA
     Route: 042
     Dates: start: 20070326, end: 20070326
  4. PENTAGIN [Suspect]
     Indication: INDUCTION OF ANAESTHESIA
     Route: 042
     Dates: start: 20070326, end: 20070326

REACTIONS (1)
  - LARYNGEAL OEDEMA [None]
